FAERS Safety Report 5729458-2 (Version None)
Quarter: 2008Q2

REPORT INFORMATION
  Report Type: 
  Country: None (occurrence: None)
  Receive Date: 20080506
  Receipt Date: 20080305
  Transmission Date: 20081010
  Serious: Yes (Hospitalization, Other)
  Sender: FDA-Public Use
  Company Number: TR-ELI_LILLY_AND_COMPANY-TR200804006408

PATIENT

DRUGS (3)
  1. HUMULIN R [Suspect]
     Dosage: 37 U, DAILY (1/D)
     Route: 064
  2. HUMULIN N [Suspect]
     Dosage: 4 U, DAILY (1/D)
     Route: 064
  3. ANTIBIOTICS [Concomitant]
     Dosage: UNK, UNKNOWN
     Route: 065

REACTIONS (4)
  - DRUG EXPOSURE DURING PREGNANCY [None]
  - JAUNDICE NEONATAL [None]
  - NEONATAL RESPIRATORY FAILURE [None]
  - PREMATURE BABY [None]
